FAERS Safety Report 9919778 (Version 2)
Quarter: 2014Q1

REPORT INFORMATION
  Report Type: Spontaneous
  Country: IT (occurrence: IT)
  Receive Date: 20140224
  Receipt Date: 20140319
  Transmission Date: 20141002
  Serious: Yes (Other)
  Sender: FDA-Public Use
  Company Number: IT-TEVA-462650ISR

PATIENT
  Age: 53 Year
  Sex: Male

DRUGS (3)
  1. CARBOLITHIUM 300 MG [Suspect]
     Dosage: 50 DOSAGE FORMS DAILY;
     Route: 048
     Dates: start: 20131229, end: 20131229
  2. VALIUM 10MG/2ML [Suspect]
     Dosage: 1 DOSAGE FORMS DAILY;
     Route: 030
     Dates: start: 20131229, end: 20131229
  3. ZYPREXA 2.5 MG [Suspect]
     Dosage: 15 MILLIGRAM DAILY;
     Route: 048
     Dates: start: 20131229, end: 20131229

REACTIONS (4)
  - Loss of consciousness [Recovered/Resolved]
  - Sopor [Recovered/Resolved]
  - Drug abuse [Recovered/Resolved]
  - Self injurious behaviour [Recovered/Resolved]
